FAERS Safety Report 21506166 (Version 1)
Quarter: 2022Q4

REPORT INFORMATION
  Report Type: Other
  Country: GB (occurrence: GB)
  Receive Date: 20221026
  Receipt Date: 20221026
  Transmission Date: 20230113
  Serious: Yes (Death, Other)
  Sender: FDA-Public Use
  Company Number: GB-JNJFOC-20221007693

PATIENT

DRUGS (2)
  1. DEXAMETHASONE [Suspect]
     Active Substance: DEXAMETHASONE
     Indication: Cardiac amyloidosis
     Dosage: UNK, 1 DOSE 5 WEEKS
     Route: 065
  2. VELCADE [Suspect]
     Active Substance: BORTEZOMIB
     Indication: Cardiac amyloidosis
     Dosage: UNK, 1 DOSE 5 WEEKS
     Route: 065

REACTIONS (3)
  - Drug ineffective [Fatal]
  - Off label use [Fatal]
  - Cardiac amyloidosis [Fatal]
